FAERS Safety Report 24721280 (Version 1)
Quarter: 2024Q4

REPORT INFORMATION
  Report Type: Spontaneous
  Country: US (occurrence: US)
  Receive Date: 20241211
  Receipt Date: 20241211
  Transmission Date: 20250115
  Serious: No
  Sender: TOLMAR
  Company Number: US-TOLMAR, INC.-24US054477

PATIENT
  Age: 10 Year
  Sex: Female

DRUGS (3)
  1. FENSOLVI [Suspect]
     Active Substance: LEUPROLIDE ACETATE
     Indication: Precocious puberty
     Dosage: 45 MILLIGRAM, Q 6 MONTH
     Dates: start: 20241125
  2. FENSOLVI [Suspect]
     Active Substance: LEUPROLIDE ACETATE
     Dosage: 45 MILLIGRAM, Q 6 MONTH
     Dates: start: 202311
  3. FENSOLVI [Suspect]
     Active Substance: LEUPROLIDE ACETATE
     Dosage: 45 MILLIGRAM, Q 6 MONTH
     Dates: start: 202405

REACTIONS (4)
  - Intercepted product preparation error [Unknown]
  - Device leakage [Unknown]
  - Device occlusion [Unknown]
  - Syringe issue [Unknown]

NARRATIVE: CASE EVENT DATE: 20241125
